FAERS Safety Report 8798532 (Version 1)
Quarter: 2012Q4

REPORT INFORMATION
  Report Type: Spontaneous
  Country: US (occurrence: None)
  Receive Date: 20120914
  Receipt Date: 20120914
  Transmission Date: 20130627
  Serious: Yes (Other)
  Sender: FDA-Public Use
  Company Number: 54973 AE # 1008

PATIENT
  Age: 73 Year
  Sex: Male

DRUGS (1)
  1. HYLAND^S RESTFUL LEGS [Suspect]
     Dosage: 2 Tablets up to 4XDay

REACTIONS (2)
  - Visual impairment [None]
  - Confusional state [None]
